FAERS Safety Report 6723243-0 (Version None)
Quarter: 2010Q2

REPORT INFORMATION
  Report Type: 
  Country: None (occurrence: None)
  Receive Date: 20100512
  Receipt Date: 20100512
  Transmission Date: 20101027
  Serious: Yes (Other)
  Sender: FDA-Public Use
  Company Number: None

PATIENT
  Age: 44 Year
  Sex: Male
  Weight: 104.3273 kg

DRUGS (1)
  1. ZICAM [Suspect]

REACTIONS (1)
  - ANOSMIA [None]
